FAERS Safety Report 7081666-7 (Version None)
Quarter: 2010Q4

REPORT INFORMATION
  Report Type: 
  Country: None (occurrence: None)
  Receive Date: 20101103
  Receipt Date: 20101026
  Transmission Date: 20110411
  Serious: No
  Sender: FDA-Public Use
  Company Number: US-B.I. PHARMACEUTICALS,INC./RIDGEFIELD-2010-BP-11084BP

PATIENT
  Age: 53 Year
  Sex: Male
  Weight: 101.15 kg

DRUGS (8)
  1. MICARDIS [Suspect]
     Indication: HYPERTENSION
     Dosage: Q AM
     Dates: start: 20100709, end: 20100801
  2. LEXAPRO [Concomitant]
     Indication: DEPRESSION
     Dosage: Q AM
  3. FISH OIL [Concomitant]
     Indication: BLOOD CHOLESTEROL INCREASED
  4. GARLIC [Concomitant]
     Indication: BLOOD CHOLESTEROL INCREASED
  5. ASPIRIN [Concomitant]
  6. ANDROGEL [Concomitant]
     Indication: HYPOGONADISM
  7. FERROMYN [Concomitant]
     Dosage: 100 MG
  8. BENICAR [Concomitant]
     Dosage: 20 MG

REACTIONS (4)
  - PHARYNGEAL OEDEMA [None]
  - PRURITUS [None]
  - SENSATION OF FOREIGN BODY [None]
  - THROAT IRRITATION [None]
